FAERS Safety Report 14198976 (Version 1)
Quarter: 2017Q4

REPORT INFORMATION
  Report Type: Spontaneous
  Country: FR (occurrence: FR)
  Receive Date: 20171117
  Receipt Date: 20171117
  Transmission Date: 20180321
  Serious: Yes (Other)
  Sender: FDA-Public Use
  Company Number: FR-MERCK KGAA-2034502

PATIENT
  Sex: Female

DRUGS (2)
  1. NOVOTHYROX [Suspect]
     Active Substance: LEVOTHYROXINE SODIUM
     Indication: THYROID DISORDER
  2. CORDARONE [Suspect]
     Active Substance: AMIODARONE HYDROCHLORIDE

REACTIONS (4)
  - Fatigue [None]
  - Abdominal pain upper [None]
  - Arrhythmia [Not Recovered/Not Resolved]
  - Sleep disorder [None]
